FAERS Safety Report 6297364-3 (Version None)
Quarter: 2009Q3

REPORT INFORMATION
  Report Type: 
  Country: None (occurrence: None)
  Receive Date: 20090805
  Receipt Date: 20090729
  Transmission Date: 20100115
  Serious: Yes (Other)
  Sender: FDA-Public Use
  Company Number: JP-JNJFOC-20090800462

PATIENT
  Age: 80 Year
  Sex: Female

DRUGS (2)
  1. CRAVIT [Suspect]
     Indication: RESPIRATORY TRACT INFECTION
     Route: 048
  2. LOXONIN [Suspect]
     Indication: PYREXIA
     Dosage: AS NEEDED
     Route: 065

REACTIONS (3)
  - CLONIC CONVULSION [None]
  - DEHYDRATION [None]
  - DEPRESSED LEVEL OF CONSCIOUSNESS [None]
